FAERS Safety Report 4625805-3 (Version None)
Quarter: 2005Q1

REPORT INFORMATION
  Report Type: 
  Country: None (occurrence: None)
  Receive Date: 20050330
  Receipt Date: 20050317
  Transmission Date: 20050727
  Serious: Yes (Hospitalization)
  Sender: FDA-Public Use
  Company Number: 211677

PATIENT
  Sex: Male
  Weight: 70 kg

DRUGS (10)
  1. MABTHERA(RITUXIMAB) CONC FOR SOLUTION FOR INFUSION [Suspect]
     Indication: CHRONIC LYMPHOCYTIC LEUKAEMIA
     Dosage: 375 MG/M2, INTRAVENOUS; 500 MG/M2, INTRAVENOUS
     Route: 042
     Dates: start: 20031111, end: 20040401
  2. MABTHERA(RITUXIMAB) CONC FOR SOLUTION FOR INFUSION [Suspect]
     Indication: CHRONIC LYMPHOCYTIC LEUKAEMIA
     Dosage: 375 MG/M2, INTRAVENOUS; 500 MG/M2, INTRAVENOUS
     Route: 042
     Dates: start: 20040106, end: 20040402
  3. FLUDARABINE PHOSPHATE [Concomitant]
  4. CYCLOPHOSPHAMIDE [Concomitant]
  5. NEUPOGEN [Concomitant]
  6. PANTOZOL (PANTOPRAZOLE) [Concomitant]
  7. DIFLUCAN [Concomitant]
  8. CIPROFLOXACIN [Concomitant]
  9. ACICLOVIR (ACYCLOVIR) [Concomitant]
  10. CLAVERSAL (MESALAMINE) [Concomitant]

REACTIONS (5)
  - COLITIS ULCERATIVE [None]
  - LEUKOPENIA [None]
  - PROCTITIS [None]
  - PROCTOCOLITIS [None]
  - WEIGHT DECREASED [None]
